FAERS Safety Report 13740476 (Version 1)
Quarter: 2017Q3

REPORT INFORMATION
  Report Type: Spontaneous
  Country: US (occurrence: US)
  Receive Date: 20170710
  Receipt Date: 20170710
  Transmission Date: 20171127
  Serious: No
  Sender: FDA-Public Use
  Company Number: None

PATIENT
  Age: 74 Year
  Sex: Female
  Weight: 85.5 kg

DRUGS (7)
  1. SPIRONOLACTONE. [Concomitant]
     Active Substance: SPIRONOLACTONE
  2. ASPRIN [Concomitant]
     Active Substance: ASPIRIN
  3. LEVOTHYROXINE. [Concomitant]
     Active Substance: LEVOTHYROXINE
  4. VITAMIN D3 [Concomitant]
     Active Substance: CHOLECALCIFEROL
  5. CPAP MACHINE [Concomitant]
  6. B-12 LIQUID [Concomitant]
  7. CARVEDILOL. [Suspect]
     Active Substance: CARVEDILOL
     Indication: STRESS CARDIOMYOPATHY
     Dosage: ?          OTHER STRENGTH:GM;QUANTITY:1 TABLET(S);?
     Route: 048
     Dates: start: 20170305, end: 20170328

REACTIONS (6)
  - Exercise tolerance decreased [None]
  - Pain [None]
  - Palpitations [None]
  - Product quality issue [None]
  - Insomnia [None]
  - Chest discomfort [None]

NARRATIVE: CASE EVENT DATE: 20170305
